FAERS Safety Report 18144782 (Version 1)
Quarter: 2020Q3

REPORT INFORMATION
  Report Type: Spontaneous
  Country: US (occurrence: US)
  Receive Date: 20200813
  Receipt Date: 20200813
  Transmission Date: 20201103
  Serious: Yes (Hospitalization)
  Sender: FDA-Public Use
  Company Number: None

PATIENT
  Age: 58 Year
  Sex: Female
  Weight: 116.5 kg

DRUGS (2)
  1. LENALIDOMIDE (CC?5013) [Concomitant]
     Active Substance: LENALIDOMIDE
     Dates: end: 20200731
  2. DEXAMETHASON (34521) [Suspect]
     Active Substance: DEXAMETHASONE
     Dates: end: 20200727

REACTIONS (3)
  - Abdominal pain [None]
  - Vomiting [None]
  - Nausea [None]

NARRATIVE: CASE EVENT DATE: 20200806
